FAERS Safety Report 4277574-7 (Version None)
Quarter: 2004Q1

REPORT INFORMATION
  Report Type: 
  Country: None (occurrence: None)
  Receive Date: 20040121
  Receipt Date: 20040121
  Transmission Date: 20041129
  Serious: Yes (Other)
  Sender: FDA-Public Use
  Company Number: None

PATIENT
  Sex: Female
  Weight: 66.6788 kg

DRUGS (1)
  1. ETHYOL [Suspect]
     Dosage: 500MG SC
     Route: 058

REACTIONS (3)
  - DERMATITIS EXFOLIATIVE [None]
  - RASH GENERALISED [None]
  - RASH PRURITIC [None]
